FAERS Safety Report 6332802-9 (Version None)
Quarter: 2009Q3

REPORT INFORMATION
  Report Type: 
  Country: None (occurrence: None)
  Receive Date: 20090828
  Receipt Date: 20090819
  Transmission Date: 20100115
  Serious: Yes (Other)
  Sender: FDA-Public Use
  Company Number: B0590373A

PATIENT
  Sex: Male

DRUGS (1)
  1. LAMICTAL [Suspect]
     Indication: FRONTAL LOBE EPILEPSY
     Dosage: 200MG PER DAY
     Route: 065
     Dates: start: 20040101

REACTIONS (2)
  - BLOOD CHOLESTEROL INCREASED [None]
  - INFERTILITY MALE [None]
